FAERS Safety Report 15825730 (Version 1)
Quarter: 2019Q1

REPORT INFORMATION
  Report Type: Spontaneous
  Country: US (occurrence: US)
  Receive Date: 20190115
  Receipt Date: 20190115
  Transmission Date: 20190417
  Serious: Yes (Other)
  Sender: FDA-Public Use
  Company Number: US-SUNOVION-2019SUN000130

PATIENT
  Sex: Female

DRUGS (1)
  1. LATUDA [Suspect]
     Active Substance: LURASIDONE HYDROCHLORIDE
     Dosage: 40 MG IN THE EVENING
     Route: 048

REACTIONS (4)
  - Nausea [Unknown]
  - Haematochezia [Unknown]
  - Faecal volume decreased [Unknown]
  - Dizziness [Unknown]
